FAERS Safety Report 6808509-8 (Version None)
Quarter: 2010Q2

REPORT INFORMATION
  Report Type: 
  Country: None (occurrence: None)
  Receive Date: 20100629
  Receipt Date: 20090703
  Transmission Date: 20101027
  Serious: No
  Sender: FDA-Public Use
  Company Number: US-PFIZER INC-2009235827

PATIENT
  Sex: Female

DRUGS (2)
  1. XANAX [Interacting]
     Indication: ANXIETY
     Dosage: UNK
  2. NICOTINE [Suspect]
     Dosage: UNK
     Route: 062

REACTIONS (2)
  - DRUG INTERACTION [None]
  - HYPOAESTHESIA [None]
